FAERS Safety Report 9341596 (Version 2)
Quarter: 2013Q2

REPORT INFORMATION
  Report Type: Spontaneous
  Country: NL (occurrence: None)
  Receive Date: 20130604
  Receipt Date: 20130617
  Transmission Date: 20140414
  Serious: Yes (Death)
  Sender: FDA-Public Use
  Company Number: 2013036279

PATIENT
  Age: 92 Year
  Sex: Male

DRUGS (13)
  1. BERIPLEX [Suspect]
     Indication: SURGERY
     Dates: start: 20130116
  2. ACENOCOUMAROL [Concomitant]
  3. FRAXIPARINE [Concomitant]
  4. BISOPROLOL FUMARATE [Concomitant]
  5. GLICLAZIDE (GLICLAZIDE) [Concomitant]
  6. MACROGOL [Concomitant]
  7. CALCIUM [Concomitant]
  8. LISINOPRIL [Concomitant]
  9. KETOCONAZOLE [Concomitant]
  10. VITAMINS NOS [Concomitant]
  11. LIDOCAINE [Concomitant]
  12. VITAMIN K [Concomitant]
  13. MORPHINE [Concomitant]

REACTIONS (1)
  - Pulmonary embolism [None]
